FAERS Safety Report 5165199-0 (Version None)
Quarter: 2006Q4

REPORT INFORMATION
  Report Type: 
  Country: None (occurrence: None)
  Receive Date: 20061127
  Receipt Date: 20061107
  Transmission Date: 20070319
  Serious: Yes (Hospitalization)
  Sender: FDA-Public Use
  Company Number: 2006SP003347

PATIENT
  Age: 54 Year
  Sex: Male

DRUGS (4)
  1. PEG-INTRON [Suspect]
     Indication: HEPATITIS C
     Dosage: 120 MCG QW SC
     Route: 058
     Dates: start: 20060922, end: 20060922
  2. REBETOL [Suspect]
     Indication: HEPATITIS C
     Dosage: 200 MG PO
     Route: 048
     Dates: start: 20060922, end: 20060924
  3. LEVOTHYROXINE SODIUM [Concomitant]
  4. IBUPROFEN [Concomitant]

REACTIONS (7)
  - BLOOD CREATININE INCREASED [None]
  - BLOOD UREA INCREASED [None]
  - DEHYDRATION [None]
  - DIARRHOEA [None]
  - OESOPHAGITIS [None]
  - PYREXIA [None]
  - VOMITING [None]
